FAERS Safety Report 23778360 (Version 1)
Quarter: 2024Q2

REPORT INFORMATION
  Report Type: Spontaneous
  Country: AU (occurrence: AU)
  Receive Date: 20240424
  Receipt Date: 20240424
  Transmission Date: 20240716
  Serious: Yes (Hospitalization)
  Sender: FDA-Public Use
  Company Number: AU-AMGEN-AUSSP2024079150

PATIENT
  Age: 82 Year
  Sex: Female

DRUGS (1)
  1. CARFILZOMIB [Suspect]
     Active Substance: CARFILZOMIB
     Indication: Plasma cell myeloma
     Dosage: UNK
     Route: 065

REACTIONS (5)
  - Echocardiogram abnormal [Unknown]
  - Cardiomyopathy [Not Recovered/Not Resolved]
  - Rales [Unknown]
  - Tachycardia [Unknown]
  - Venous pressure jugular increased [Unknown]

NARRATIVE: CASE EVENT DATE: 20240308
